FAERS Safety Report 9337848 (Version 2)
Quarter: 2013Q2

REPORT INFORMATION
  Report Type: Report from Study
  Country: GB (occurrence: GB)
  Receive Date: 20130607
  Receipt Date: 20130627
  Transmission Date: 20140414
  Serious: Yes (Other)
  Sender: FDA-Public Use
  Company Number: GB-RB-054930-13

PATIENT
  Age: 44 Year
  Sex: Male
  Weight: 89 kg

DRUGS (1)
  1. SUBOXONE TABLETS [Suspect]
     Dosage: DOSE NOT PROVIDED
     Route: 060
     Dates: start: 20130516, end: 20130523

REACTIONS (2)
  - Hepatitis [Recovering/Resolving]
  - Drug withdrawal syndrome [Recovered/Resolved]
